FAERS Safety Report 4954024-6 (Version None)
Quarter: 2006Q1

REPORT INFORMATION
  Report Type: 
  Country: None (occurrence: None)
  Receive Date: 20060327
  Receipt Date: 20060315
  Transmission Date: 20060701
  Serious: Yes (Other)
  Sender: FDA-Public Use
  Company Number: US-GILEAD-2006-0009316

PATIENT
  Age: 53 Year
  Sex: Female
  Weight: 56 kg

DRUGS (1)
  1. TRUVADA [Suspect]

REACTIONS (2)
  - BLOOD CREATININE INCREASED [None]
  - DRUG PRESCRIBING ERROR [None]
